FAERS Safety Report 5053186-2 (Version None)
Quarter: 2006Q3

REPORT INFORMATION
  Report Type: 
  Country: None (occurrence: None)
  Receive Date: 20060712
  Receipt Date: 20060622
  Transmission Date: 20061208
  Serious: Yes (Other)
  Sender: FDA-Public Use
  Company Number: US200606005766

PATIENT
  Sex: Female

DRUGS (2)
  1. FORTEO [Suspect]
     Dosage: 20 UG
     Dates: start: 20050101
  2. FORTEO [Concomitant]

REACTIONS (3)
  - CONVULSION [None]
  - HIP FRACTURE [None]
  - PELVIC FRACTURE [None]
